FAERS Safety Report 5283720-9 (Version None)
Quarter: 2007Q1

REPORT INFORMATION
  Report Type: 
  Country: None (occurrence: None)
  Receive Date: 20061226
  Receipt Date: 20051206
  Transmission Date: 20070707
  Serious: Yes (Life-Threatening)
  Sender: FDA-Public Use
  Company Number: WAES 0510USA06905

PATIENT
  Age: 64 Year
  Sex: Female
  Weight: 115.2136 kg

DRUGS (15)
  1. ZETIA [Suspect]
     Indication: HYPERLIPIDAEMIA
     Dosage: 10MG, DAILY; PO
     Route: 048
     Dates: start: 20050907, end: 20050901
  2. ALLEGRA [Concomitant]
  3. FLEXERIL [Concomitant]
  4. FOLPLEX [Concomitant]
  5. GLIPIZIDE [Concomitant]
  6. LIPITOR [Concomitant]
  7. LOZOL [Concomitant]
  8. NASONEX [Concomitant]
  9. NEXIUM [Concomitant]
  10. ORABET (METFORMIN HYDROCHLORIDE) [Concomitant]
  11. ALBUTEROL [Concomitant]
  12. ASPIRIN [Concomitant]
  13. ATENOLOL [Concomitant]
  14. LISINOPRIL [Concomitant]
  15. MULTI-VITAMINS [Concomitant]

REACTIONS (2)
  - SWELLING FACE [None]
  - SWOLLEN TONGUE [None]
